FAERS Safety Report 9187483 (Version 1)
Quarter: 2013Q1

REPORT INFORMATION
  Report Type: Spontaneous
  Country: DK (occurrence: GB)
  Receive Date: 20130325
  Receipt Date: 20130325
  Transmission Date: 20140127
  Serious: Yes (Other)
  Sender: FDA-Public Use
  Company Number: GB-FRI-1000043681

PATIENT
  Age: 29 Year
  Sex: Male

DRUGS (2)
  1. CITALOPRAM [Suspect]
     Dosage: 40 MG DAILY
     Route: 048
  2. CITALOPRAM [Suspect]
     Dosage: 20 MG DAILY
     Route: 048
     Dates: end: 201202

REACTIONS (5)
  - Palpitations [Unknown]
  - Micturition urgency [Unknown]
  - Genital swelling [Unknown]
  - Constipation [Unknown]
  - Drug ineffective [Unknown]
